FAERS Safety Report 8379633-6 (Version None)
Quarter: 2012Q2

REPORT INFORMATION
  Report Type: 
  Country: None (occurrence: None)
  Receive Date: 20120523
  Receipt Date: 20120517
  Transmission Date: 20120825
  Serious: Yes (Hospitalization)
  Sender: FDA-Public Use
  Company Number: US-BAYER-2012-003039

PATIENT
  Age: 44 Year
  Sex: Female
  Weight: 69 kg

DRUGS (16)
  1. ZOSYN [Concomitant]
     Indication: BACTERAEMIA
  2. RISPERDAL [Concomitant]
     Indication: SCHIZOPHRENIA
     Dosage: UNK
     Dates: start: 19870101, end: 20110101
  3. METOPROLOL [Concomitant]
     Indication: HYPERTENSION
     Dosage: 12.5 MG, BID
  4. MOTRIN [Concomitant]
     Dosage: 600 MG, PRN
  5. TEMAZEPAM [Concomitant]
     Dosage: 3 MG, HS
  6. VANCOMYCIN [Concomitant]
     Indication: BACTERAEMIA
  7. ABILIFY [Concomitant]
     Dosage: 10 MG, DAILY
  8. HALDOL [Concomitant]
     Dosage: UNK
     Dates: end: 20090210
  9. GEODON [Concomitant]
  10. OXACILLIN [Concomitant]
     Indication: STAPHYLOCOCCAL BACTERAEMIA
  11. BENADRYL [Concomitant]
     Dosage: 50 MG, BID
  12. YASMIN [Suspect]
     Dosage: UNK
     Dates: start: 20080701, end: 20090201
  13. LORAZEPAM [Concomitant]
     Indication: ANXIETY
     Dosage: UNK
     Dates: start: 20070101, end: 20100101
  14. LAMICTAL [Concomitant]
     Indication: BIPOLAR DISORDER
     Dosage: 100 MG, DAILY
  15. COGENTIN [Concomitant]
     Dosage: 1 MG, DAILY
  16. ALPRAZOLAM [Concomitant]
     Indication: ANXIETY
     Dosage: 1 MG, BID

REACTIONS (5)
  - PULMONARY EMBOLISM [None]
  - PAIN [None]
  - DEEP VEIN THROMBOSIS [None]
  - INJURY [None]
  - MENTAL DISORDER [None]
